FAERS Safety Report 7596626-7 (Version None)
Quarter: 2011Q3

REPORT INFORMATION
  Report Type: 
  Country: None (occurrence: None)
  Receive Date: 20110708
  Receipt Date: 20110628
  Transmission Date: 20111222
  Serious: Yes (Hospitalization)
  Sender: FDA-Public Use
  Company Number: HU-JNJFOC-20110311631

PATIENT
  Sex: Female
  Weight: 80 kg

DRUGS (12)
  1. METHYLPREDNISOLONE [Concomitant]
     Route: 048
  2. METHOTREXATE [Suspect]
     Indication: RHEUMATOID ARTHRITIS
     Route: 048
     Dates: start: 20061114, end: 20080301
  3. METHOTREXATE [Concomitant]
     Route: 048
     Dates: start: 20090430, end: 20110103
  4. DIAPREL [Concomitant]
     Route: 048
  5. PERINDOPRIL [Concomitant]
     Route: 048
     Dates: start: 20071115
  6. IBANDRONATE [Concomitant]
     Route: 042
     Dates: start: 20080619
  7. VITAMIN D [Concomitant]
     Route: 048
     Dates: start: 20080619
  8. BISOPROLOL FUMARATE [Concomitant]
     Route: 048
     Dates: end: 20110113
  9. KALIUM-R [Concomitant]
     Route: 048
     Dates: end: 20110113
  10. GOLIMUMAB [Suspect]
     Route: 058
  11. FURON [Concomitant]
     Route: 048
     Dates: end: 20110113
  12. GOLIMUMAB [Suspect]
     Indication: RHEUMATOID ARTHRITIS
     Route: 058
     Dates: start: 20061114, end: 20101104

REACTIONS (1)
  - COLITIS [None]
